FAERS Safety Report 20227597 (Version 2)
Quarter: 2022Q1

REPORT INFORMATION
  Report Type: Spontaneous
  Country: US (occurrence: US)
  Receive Date: 20211224
  Receipt Date: 20220210
  Transmission Date: 20220424
  Serious: Yes (Hospitalization)
  Sender: FDA-Public Use
  Company Number: US-BIOVITRUM-2021US8561

PATIENT
  Age: 0 Year
  Sex: Male

DRUGS (8)
  1. SYNAGIS [Suspect]
     Active Substance: PALIVIZUMAB
     Indication: Antiviral prophylaxis
     Route: 030
     Dates: start: 202103
  2. SYNAGIS [Suspect]
     Active Substance: PALIVIZUMAB
     Indication: Ventricular septal defect
     Dosage: 1ML P KG (50MG/0.5ML, 100MG/ML)
     Route: 030
     Dates: start: 20210827
  3. DIGOXIN [Concomitant]
     Active Substance: DIGOXIN
  4. VITAMINS [Concomitant]
     Active Substance: VITAMINS
  5. PLAVIX [Concomitant]
     Active Substance: CLOPIDOGREL BISULFATE
  6. SYNAGIS [Suspect]
     Active Substance: PALIVIZUMAB
     Indication: Congenital great vessel anomaly
  7. SYNAGIS [Suspect]
     Active Substance: PALIVIZUMAB
     Indication: Pulmonary artery atresia
  8. AMOXICILLIN [Concomitant]
     Active Substance: AMOXICILLIN

REACTIONS (1)
  - Hospitalisation [Unknown]

NARRATIVE: CASE EVENT DATE: 20211126
